FAERS Safety Report 5301070-9 (Version None)
Quarter: 2007Q2

REPORT INFORMATION
  Report Type: 
  Country: None (occurrence: None)
  Receive Date: 20070418
  Receipt Date: 20070404
  Transmission Date: 20071010
  Serious: Yes (Hospitalization)
  Sender: FDA-Public Use
  Company Number: US-ELI_LILLY_AND_COMPANY-US200703001862

PATIENT
  Age: 73 Year
  Sex: Female

DRUGS (6)
  1. FORTEO [Suspect]
     Indication: OSTEOPOROSIS
     Dosage: UNK, UNKNOWN
     Dates: start: 20070306, end: 20070313
  2. OSCAL [Concomitant]
     Dosage: UNK, UNKNOWN
  3. VASOTEC [Concomitant]
     Indication: BLOOD PRESSURE
  4. METOPROLOL SUCCINATE [Concomitant]
     Indication: BLOOD PRESSURE
  5. NORVASC [Concomitant]
     Indication: BLOOD PRESSURE
  6. HYDROCHLOROTHIAZIDE [Concomitant]
     Indication: BLOOD PRESSURE

REACTIONS (7)
  - BLOOD POTASSIUM DECREASED [None]
  - CHEST DISCOMFORT [None]
  - CHEST PAIN [None]
  - FLUSHING [None]
  - HEART RATE INCREASED [None]
  - PULMONARY OEDEMA [None]
  - RASH MACULAR [None]
